FAERS Safety Report 7735615 (Version 3)
Quarter: 2015Q1

REPORT INFORMATION
  Report Type: Spontaneous
  Country: US (occurrence: US)
  Receive Date: 20101223
  Receipt Date: 20150108
  Transmission Date: 20150721
  Serious: Yes (Hospitalization)
  Sender: FDA-Public Use
  Company Number: US-BAYER-2010-003289

PATIENT
  Age: 33 Year
  Sex: Female
  Weight: 58.96 kg

DRUGS (5)
  1. ATENOLOL. [Concomitant]
     Active Substance: ATENOLOL
     Dosage: 12.5 MG, UNK
  2. FLUCONAZOLE. [Concomitant]
     Active Substance: FLUCONAZOLE
     Dosage: 150 MG, UNK
     Dates: start: 20050330
  3. ZITHROMAX [Concomitant]
     Active Substance: AZITHROMYCIN DIHYDRATE
     Dosage: 250 MG, UNK
     Dates: start: 20050330
  4. YASMIN [Suspect]
     Active Substance: DROSPIRENONE\ETHINYL ESTRADIOL
     Dosage: UNK
     Dates: start: 20040424, end: 20050421
  5. TUSSIONEX PENNKINETIC [Concomitant]
     Active Substance: CHLORPHENIRAMINE\HYDROCODONE
     Dosage: UNK
     Dates: start: 20050330

REACTIONS (8)
  - Tremor [Recovered/Resolved]
  - Pain in extremity [Recovered/Resolved]
  - Muscle spasms [Recovered/Resolved]
  - Memory impairment [Recovered/Resolved]
  - Aphasia [Recovered/Resolved]
  - Cerebrovascular accident [Recovered/Resolved]
  - Hemiparesis [Recovered/Resolved]
  - Walking distance test abnormal [Recovered/Resolved]

NARRATIVE: CASE EVENT DATE: 20050415
